FAERS Safety Report 9721981 (Version 2)
Quarter: 2014Q1

REPORT INFORMATION
  Report Type: Spontaneous
  Country: IT (occurrence: IT)
  Receive Date: 20131202
  Receipt Date: 20140219
  Transmission Date: 20141002
  Serious: Yes (Hospitalization)
  Sender: FDA-Public Use
  Company Number: IT-BRISTOL-MYERS SQUIBB COMPANY-19843853

PATIENT
  Age: 79 Year
  Sex: Female

DRUGS (9)
  1. WARFARIN SODIUM [Suspect]
     Indication: ATRIAL FIBRILLATION
     Route: 048
     Dates: start: 20131001, end: 20131019
  2. DILTIAZEM HCL [Suspect]
     Indication: ATRIAL FIBRILLATION
     Route: 048
     Dates: start: 20131001, end: 20131017
  3. LANSOPRAZOLE [Concomitant]
     Route: 048
  4. FUROSEMIDE [Concomitant]
     Route: 048
  5. BISOPROLOL HEMIFUMARATE [Concomitant]
  6. HYDROCHLOROTHIAZIDE [Concomitant]
  7. CANRENONE [Concomitant]
     Route: 048
  8. TICLOPIDINE HCL [Concomitant]
     Route: 048
  9. RAMIPRIL [Concomitant]
     Route: 048

REACTIONS (1)
  - Erythema [Recovering/Resolving]
